FAERS Safety Report 19984947 (Version 1)
Quarter: 2021Q4

REPORT INFORMATION
  Report Type: Spontaneous
  Country: FR (occurrence: FR)
  Receive Date: 20211022
  Receipt Date: 20211022
  Transmission Date: 20220303
  Serious: Yes (Other)
  Sender: FDA-Public Use
  Company Number: 2021A779380

PATIENT
  Age: 71 Year
  Sex: Female

DRUGS (2)
  1. PULMICORT TURBUHALER [Suspect]
     Active Substance: BUDESONIDE
     Indication: Bronchitis
     Route: 055
     Dates: start: 20210928
  2. BRICANYL [Suspect]
     Active Substance: TERBUTALINE SULFATE
     Indication: Bronchitis
     Dosage: 500.0UG UNKNOWN
     Route: 065
     Dates: start: 20210928

REACTIONS (6)
  - Obstructive pancreatitis [Unknown]
  - Device malfunction [Unknown]
  - Off label use [Unknown]
  - Wrong technique in device usage process [Unknown]
  - Device malfunction [Unknown]
  - Incorrect dose administered by device [Unknown]

NARRATIVE: CASE EVENT DATE: 20210928
